FAERS Safety Report 7942389-2 (Version None)
Quarter: 2011Q4

REPORT INFORMATION
  Report Type: 
  Country: None (occurrence: None)
  Receive Date: 20111128
  Receipt Date: 20111122
  Transmission Date: 20120403
  Serious: Yes (Other)
  Sender: FDA-Public Use
  Company Number: GB-PFIZER INC-2011286339

PATIENT
  Sex: Female

DRUGS (1)
  1. DEPO-PROVERA [Suspect]

REACTIONS (2)
  - SCIATICA [None]
  - BACK PAIN [None]
